FAERS Safety Report 9897763 (Version 3)
Quarter: 2014Q1

REPORT INFORMATION
  Report Type: Spontaneous
  Country: US (occurrence: US)
  Receive Date: 20140214
  Receipt Date: 20140227
  Transmission Date: 20141002
  Serious: Yes (Other)
  Sender: FDA-Public Use
  Company Number: US-AMGEN-USASP2011043323

PATIENT
  Age: 64 Year
  Sex: Female
  Weight: 41.27 kg

DRUGS (9)
  1. ENBREL [Suspect]
     Indication: RHEUMATOID ARTHRITIS
     Dosage: 40 MG, QWK
     Route: 058
     Dates: start: 20110614, end: 20110801
  2. NEXIUM                             /01479302/ [Concomitant]
     Dosage: 40 MG, QD
  3. CALCIUM + VITAMIN D                /01483701/ [Concomitant]
     Dosage: 600 MG-400 INTL UNITS 1 TAB BID
  4. SPIRONOLACTONE [Concomitant]
     Dosage: 25 MG, QD
  5. LASIX                              /00032601/ [Concomitant]
     Dosage: 40 MG, QD
  6. POTASSIUM                          /00031402/ [Concomitant]
     Dosage: 60 MEQ, BID
  7. LIPITOR [Concomitant]
     Dosage: 5 MG, QHS
  8. PLAQUENIL SULFATE [Concomitant]
     Dosage: 200 MG, QD
  9. ULTRAM                             /00599202/ [Concomitant]
     Dosage: 50 MG, Q6 HR PRN

REACTIONS (17)
  - Gait disturbance [Recovered/Resolved]
  - Rheumatoid arthritis [Recovered/Resolved]
  - Drug intolerance [Unknown]
  - Butterfly rash [Recovering/Resolving]
  - Local swelling [Recovering/Resolving]
  - Pain in extremity [Recovering/Resolving]
  - Rash macular [Recovering/Resolving]
  - Arthralgia [Recovering/Resolving]
  - Feeling abnormal [Unknown]
  - Osteoporosis postmenopausal [Unknown]
  - Swelling [Unknown]
  - Raynaud^s phenomenon [Unknown]
  - Headache [Unknown]
  - Arthritis [Unknown]
  - Hypotension [Unknown]
  - Kyphosis [Unknown]
  - Tooth disorder [Unknown]
